FAERS Safety Report 14339774 (Version 2)
Quarter: 2018Q1

REPORT INFORMATION
  Report Type: Spontaneous
  Country: DE (occurrence: DE)
  Receive Date: 20171230
  Receipt Date: 20180111
  Transmission Date: 20180509
  Serious: Yes (Death, Life-Threatening, Hospitalization, Other)
  Sender: FDA-Public Use
  Company Number: DE-BAUSCH-BL-2017-035338

PATIENT
  Age: 87 Year
  Sex: Male

DRUGS (16)
  1. MADOPAR [Suspect]
     Active Substance: BENSERAZIDE HYDROCHLORIDE\LEVODOPA
     Indication: PRODUCT USED FOR UNKNOWN INDICATION
     Dosage: STARTED SINCE MONTHS (1 DOSAGE FORM; 187.5 MG TO 125 MG)
     Route: 048
  2. ABILIFY [Suspect]
     Active Substance: ARIPIPRAZOLE
     Indication: PRODUCT USED FOR UNKNOWN INDICATION
     Route: 048
     Dates: start: 20161208, end: 20161209
  3. FOLIC ACID. [Concomitant]
     Active Substance: FOLIC ACID
     Indication: PRODUCT USED FOR UNKNOWN INDICATION
     Dosage: STARTED SINCE WEEKS
     Route: 048
  4. PREDNISOLON [Suspect]
     Active Substance: PREDNISOLONE
     Indication: PRODUCT USED FOR UNKNOWN INDICATION
     Dosage: STARTED SINCE WEEKS
     Route: 048
     Dates: end: 20161221
  5. SERTRALINE [Concomitant]
     Active Substance: SERTRALINE HYDROCHLORIDE
     Indication: PRODUCT USED FOR UNKNOWN INDICATION
     Route: 048
     Dates: end: 20161128
  6. ABILIFY [Suspect]
     Active Substance: ARIPIPRAZOLE
     Route: 048
     Dates: start: 20161210, end: 20161212
  7. ABILIFY [Suspect]
     Active Substance: ARIPIPRAZOLE
     Route: 048
     Dates: start: 20161213
  8. CEFUROXIM [Concomitant]
     Active Substance: CEFUROXIME
     Indication: PRODUCT USED FOR UNKNOWN INDICATION
     Route: 048
     Dates: start: 20161223
  9. PREDNISOLON [Suspect]
     Active Substance: PREDNISOLONE
     Route: 048
     Dates: start: 20161222
  10. ACC [Concomitant]
     Active Substance: ACETYLCYSTEINE
     Indication: PRODUCT USED FOR UNKNOWN INDICATION
  11. SERTRALINE [Concomitant]
     Active Substance: SERTRALINE HYDROCHLORIDE
     Route: 048
     Dates: start: 20161129, end: 20161205
  12. QUETIAPINE. [Concomitant]
     Active Substance: QUETIAPINE
     Indication: PRODUCT USED FOR UNKNOWN INDICATION
  13. CLEXANE [Concomitant]
     Active Substance: ENOXAPARIN SODIUM
     Indication: PRODUCT USED FOR UNKNOWN INDICATION
     Route: 058
  14. PANTOPRAZOLE [Concomitant]
     Active Substance: PANTOPRAZOLE
     Indication: PRODUCT USED FOR UNKNOWN INDICATION
     Dosage: SINCE YEARS (GASTROINTESTINAL MEDICATION)
     Route: 048
  15. SERTRALINE [Concomitant]
     Active Substance: SERTRALINE HYDROCHLORIDE
     Route: 048
     Dates: start: 20161206
  16. MIRTAZAPINE. [Concomitant]
     Active Substance: MIRTAZAPINE
     Indication: PRODUCT USED FOR UNKNOWN INDICATION
     Dosage: 1 DOSAGE FORM EQUAL TO 0-30MG
     Route: 048
     Dates: start: 20161122

REACTIONS (13)
  - Atrial fibrillation [Unknown]
  - Pyrexia [Unknown]
  - Aspiration [Fatal]
  - Productive cough [Unknown]
  - Dyspnoea [Unknown]
  - Fluid intake reduced [Unknown]
  - Laboratory test abnormal [Unknown]
  - Dysphagia [Unknown]
  - Pneumonia [Fatal]
  - Sinus bradycardia [Fatal]
  - C-reactive protein increased [Unknown]
  - Loss of consciousness [Unknown]
  - Cardiopulmonary failure [Fatal]

NARRATIVE: CASE EVENT DATE: 20161223
